FAERS Safety Report 6354731-7 (Version None)
Quarter: 2009Q3

REPORT INFORMATION
  Report Type: 
  Country: None (occurrence: None)
  Receive Date: 20090909
  Receipt Date: 20090903
  Transmission Date: 20100115
  Serious: Yes (Death, Other)
  Sender: FDA-Public Use
  Company Number: 2009US003362

PATIENT
  Age: 42 Year
  Sex: Female

DRUGS (3)
  1. PROGRAF [Suspect]
     Indication: RENAL AND PANCREAS TRANSPLANT
     Dosage: 0.5 MG, BID, UNK
  2. METHYLPREDNISOLONE [Suspect]
     Indication: RENAL AND PANCREAS TRANSPLANT
     Dosage: 20 MG, UID/QD, UNK
  3. AZATHIOPRINE [Concomitant]

REACTIONS (8)
  - CYTOMEGALOVIRUS INFECTION [None]
  - DUODENITIS [None]
  - HAEMATOCRIT DECREASED [None]
  - LUNG INFECTION [None]
  - PETECHIAE [None]
  - STRONGYLOIDIASIS [None]
  - URINARY TRACT INFECTION [None]
  - WHITE BLOOD CELL COUNT DECREASED [None]
